FAERS Safety Report 24613050 (Version 1)
Quarter: 2024Q4

REPORT INFORMATION
  Report Type: Spontaneous
  Country: IT (occurrence: IT)
  Receive Date: 20241113
  Receipt Date: 20241113
  Transmission Date: 20250114
  Serious: Yes (Hospitalization)
  Sender: MYLAN
  Company Number: IT-MYLANLABS-2024M1102217

PATIENT
  Age: 40 Year
  Sex: Female

DRUGS (10)
  1. METHOTREXATE [Suspect]
     Active Substance: METHOTREXATE
     Indication: Asthenia
     Dosage: 7.5 MILLIGRAM, QW
     Route: 065
  2. LEVOTHYROXINE [Concomitant]
     Active Substance: LEVOTHYROXINE
     Indication: Autoimmune thyroiditis
     Dosage: UNK
     Route: 065
  3. CARBOPLATIN [Concomitant]
     Active Substance: CARBOPLATIN
     Indication: Non-small cell lung cancer stage IV
     Dosage: UNK, DRUG THERAPY CONTINUED
     Route: 065
  4. LIPEGFILGRASTIM [Concomitant]
     Active Substance: LIPEGFILGRASTIM
     Indication: Prophylaxis
     Dosage: UNK
     Route: 065
  5. PEMETREXED [Concomitant]
     Active Substance: PEMETREXED
     Indication: Non-small cell lung cancer stage IV
     Dosage: 500 MILLIGRAM/SQ. METER, DRUG THERAPY CONTINUED
     Route: 065
  6. PYRIDOSTIGMINE BROMIDE [Concomitant]
     Active Substance: PYRIDOSTIGMINE BROMIDE
     Indication: Myocarditis-myositis-myasthenia gravis overlap syndrome
     Dosage: 1 DOSAGE FORM
     Route: 065
  7. Immunoglobulin [Concomitant]
     Indication: Myocarditis-myositis-myasthenia gravis overlap syndrome
     Dosage: UNK, 0.4 G/KG
     Route: 042
  8. METHYLPREDNISOLONE SODIUM SUCCINATE [Concomitant]
     Active Substance: METHYLPREDNISOLONE SODIUM SUCCINATE
     Indication: Myocarditis-myositis-myasthenia gravis overlap syndrome
     Dosage: 1 GRAM
     Route: 042
  9. PREDNISONE [Concomitant]
     Active Substance: PREDNISONE
     Indication: Myocarditis-myositis-myasthenia gravis overlap syndrome
     Dosage: 1 MILLIGRAM/KILOGRAM
     Route: 048
  10. PREDNISONE [Concomitant]
     Active Substance: PREDNISONE
     Dosage: UNK, DOSE DECREASED
     Route: 048

REACTIONS (2)
  - Hepatotoxicity [Unknown]
  - Off label use [Unknown]
